FAERS Safety Report 11782735 (Version 1)
Quarter: 2015Q4

REPORT INFORMATION
  Report Type: Spontaneous
  Country: US (occurrence: US)
  Receive Date: 20151127
  Receipt Date: 20151127
  Transmission Date: 20160305
  Serious: No
  Sender: FDA-Public Use
  Company Number: US-PFIZER INC-2015391676

PATIENT
  Age: 74 Year
  Sex: Female
  Weight: 104.33 kg

DRUGS (11)
  1. LANTUS [Concomitant]
     Active Substance: INSULIN GLARGINE
     Indication: DIABETES MELLITUS
     Dosage: 28 IU, 1X/DAY
  2. LYRICA [Suspect]
     Active Substance: PREGABALIN
     Dosage: 300 MG, DAILY
  3. METHOCARBAMOL. [Concomitant]
     Active Substance: METHOCARBAMOL
     Indication: MUSCLE RELEASE
     Dosage: 750 MG, 1X/DAY(750 MG ONCE DAILY TABLET AT NIGHT)
     Dates: start: 2014
  4. METHOCARBAMOL. [Concomitant]
     Active Substance: METHOCARBAMOL
     Indication: NEUROPATHY PERIPHERAL
  5. LYRICA [Suspect]
     Active Substance: PREGABALIN
     Dosage: 100 MG, 3X/DAY
  6. METHOCARBAMOL. [Concomitant]
     Active Substance: METHOCARBAMOL
     Indication: SURGERY
  7. COUMADIN [Concomitant]
     Active Substance: WARFARIN SODIUM
     Indication: THROMBOSIS
     Dosage: 6-8 MG BASED OFF HER INR TABLET
  8. LYRICA [Suspect]
     Active Substance: PREGABALIN
     Indication: DIABETIC NEUROPATHY
     Dosage: 100 OR 150 MG
     Dates: start: 201508
  9. HYDROCODONE [Concomitant]
     Active Substance: HYDROCODONE
     Indication: PAIN
     Dosage: 7.5/325MG 2 TABLETS EVERY NIGHT
     Dates: start: 2014
  10. HYDROCODONE [Concomitant]
     Active Substance: HYDROCODONE
     Dosage: DOSE WAS INCREASED
  11. ZYRTEC [Concomitant]
     Active Substance: CETIRIZINE HYDROCHLORIDE
     Indication: HYPERSENSITIVITY
     Dosage: 10 MG, 1X/DAY

REACTIONS (5)
  - Sneezing [Not Recovered/Not Resolved]
  - Cough [Not Recovered/Not Resolved]
  - Dizziness [Recovered/Resolved]
  - Drug intolerance [Recovered/Resolved]
  - Presyncope [Recovered/Resolved]

NARRATIVE: CASE EVENT DATE: 201510
